FAERS Safety Report 4928077-5 (Version None)
Quarter: 2006Q1

REPORT INFORMATION
  Report Type: 
  Country: None (occurrence: None)
  Receive Date: 20060223
  Receipt Date: 20060130
  Transmission Date: 20060701
  Serious: Yes (Other)
  Sender: FDA-Public Use
  Company Number: GB200601005233

PATIENT
  Age: 42 Year
  Sex: Male

DRUGS (3)
  1. CYMBALTA [Suspect]
     Indication: DEPRESSION
     Dosage: 60 MG, ORAL
     Route: 048
     Dates: start: 20051205, end: 20051223
  2. MOCLOBEMIDE (MOCLOBEMIDE) [Concomitant]
  3. CHLORPROMAZINE [Concomitant]

REACTIONS (1)
  - CONVULSION [None]
